FAERS Safety Report 5919381-2 (Version None)
Quarter: 2008Q4

REPORT INFORMATION
  Report Type: 
  Country: None (occurrence: None)
  Receive Date: 20081015
  Receipt Date: 20081006
  Transmission Date: 20090506
  Serious: Yes (Other)
  Sender: FDA-Public Use
  Company Number: B0539422A

PATIENT
  Age: 58 Year
  Sex: Female
  Weight: 44 kg

DRUGS (4)
  1. TOPOTECAN [Suspect]
     Indication: OVARIAN CANCER
     Dosage: 3.2MGM2 PER DAY
     Route: 042
     Dates: start: 20080715, end: 20080826
  2. LAPATINIB [Suspect]
     Indication: OVARIAN CANCER
     Dosage: 1250MG PER DAY
     Route: 048
     Dates: start: 20080715, end: 20080910
  3. LEXOMIL [Concomitant]
     Indication: ANXIETY
     Route: 048
     Dates: start: 20010101
  4. ATARAX [Concomitant]
     Indication: ANXIETY
     Route: 048
     Dates: start: 20080903

REACTIONS (2)
  - ASPIRATION [None]
  - VOMITING [None]
